FAERS Safety Report 5346249-5 (Version None)
Quarter: 2007Q2

REPORT INFORMATION
  Report Type: 
  Country: None (occurrence: None)
  Receive Date: 20070420
  Receipt Date: 20060314
  Transmission Date: 20071010
  Serious: No
  Sender: FDA-Public Use
  Company Number: 06P-163-0327827-00

PATIENT
  Age: 46 Year
  Sex: Female

DRUGS (2)
  1. DEPAKOTE [Suspect]
     Indication: DRUG USE FOR UNKNOWN INDICATION
  2. CLOZAPINE [Suspect]
     Indication: SCHIZOPHRENIA
     Dosage: 50 MG, 1 IN 1 D, ORAL
     Route: 048
     Dates: start: 20051201, end: 20060125

REACTIONS (2)
  - DRUG INTERACTION [None]
  - GRANULOCYTOPENIA [None]
